FAERS Safety Report 5053927-4 (Version None)
Quarter: 2006Q3

REPORT INFORMATION
  Report Type: 
  Country: None (occurrence: None)
  Receive Date: 20060718
  Receipt Date: 20060612
  Transmission Date: 20061208
  Serious: Yes (Hospitalization)
  Sender: FDA-Public Use
  Company Number: JP-MERCK-0606USA02951

PATIENT
  Age: 64 Year
  Sex: Female
  Weight: 53 kg

DRUGS (7)
  1. SINGULAIR [Suspect]
     Indication: ASTHMA
     Route: 048
     Dates: start: 20051227, end: 20060609
  2. THEO-DUR [Concomitant]
     Indication: ASTHMA
     Route: 048
     Dates: start: 20040715, end: 20060609
  3. AROFUTO [Concomitant]
     Indication: MUSCULOSKELETAL STIFFNESS
     Route: 048
     Dates: start: 20040519, end: 20060609
  4. MERISLON [Concomitant]
     Indication: DIZZINESS
     Route: 048
     Dates: start: 20041021, end: 20060609
  5. DEPAS [Concomitant]
     Indication: INSOMNIA
     Route: 048
     Dates: start: 20040519, end: 20060609
  6. PURSENNID [Concomitant]
     Indication: CONSTIPATION
     Route: 048
     Dates: start: 20040519, end: 20060609
  7. FLUTIDE [Concomitant]
     Route: 055
     Dates: start: 20050308

REACTIONS (7)
  - ALANINE AMINOTRANSFERASE INCREASED [None]
  - ASPARTATE AMINOTRANSFERASE INCREASED [None]
  - BLOOD ALKALINE PHOSPHATASE INCREASED [None]
  - BLOOD LACTATE DEHYDROGENASE INCREASED [None]
  - GAMMA-GLUTAMYLTRANSFERASE INCREASED [None]
  - LIVER FUNCTION TEST ABNORMAL [None]
  - MALAISE [None]
